FAERS Safety Report 8247585-5 (Version None)
Quarter: 2012Q1

REPORT INFORMATION
  Report Type: 
  Country: None (occurrence: None)
  Receive Date: 20120330
  Receipt Date: 20120321
  Transmission Date: 20120608
  Serious: Yes (Other)
  Sender: FDA-Public Use
  Company Number: PHHY2012JP025713

PATIENT
  Age: 18 Year
  Sex: Female

DRUGS (4)
  1. CEFAZOLIN SODIUM [Suspect]
  2. CLARITHROMYCIN [Suspect]
     Route: 048
  3. RITODRINE HCL [Suspect]
     Indication: THREATENED LABOUR
  4. CEFTRIAXONE SODIUM [Suspect]

REACTIONS (7)
  - PYREXIA [None]
  - SERRATIA SEPSIS [None]
  - PREMATURE DELIVERY [None]
  - RESPIRATORY DISORDER [None]
  - TREMOR [None]
  - MATERNAL EXPOSURE DURING PREGNANCY [None]
  - BLOOD PRESSURE DECREASED [None]
